FAERS Safety Report 23023688 (Version 1)
Quarter: 2023Q4

REPORT INFORMATION
  Report Type: Spontaneous
  Country: BR (occurrence: BR)
  Receive Date: 20231003
  Receipt Date: 20231003
  Transmission Date: 20240110
  Serious: Yes (Other)
  Sender: FDA-Public Use
  Company Number: BR-009507513-2310BRA000103

PATIENT
  Age: 66 Year
  Sex: Male

DRUGS (3)
  1. PEMBROLIZUMAB [Suspect]
     Active Substance: PEMBROLIZUMAB
     Indication: Lung adenocarcinoma recurrent
     Dosage: FOR 2 YEARS
     Dates: start: 202009, end: 202009
  2. CARBOPLATIN [Suspect]
     Active Substance: CARBOPLATIN
     Indication: Lung adenocarcinoma recurrent
     Dosage: COMPLETED 4 CYCLES OF CHEMOTHERAPY
     Dates: start: 202009
  3. PEMETREXED [Suspect]
     Active Substance: PEMETREXED
     Indication: Lung adenocarcinoma recurrent
     Dosage: FOR 2 YEARS
     Dates: start: 202009, end: 202209

REACTIONS (4)
  - Lung adenocarcinoma recurrent [Unknown]
  - Malignant neoplasm progression [Unknown]
  - Insurance issue [Unknown]
  - Product use in unapproved indication [Unknown]

NARRATIVE: CASE EVENT DATE: 20230801
